FAERS Safety Report 6818409-5 (Version None)
Quarter: 2010Q3

REPORT INFORMATION
  Report Type: 
  Country: None (occurrence: None)
  Receive Date: 20100706
  Receipt Date: 20080130
  Transmission Date: 20110219
  Serious: No
  Sender: FDA-Public Use
  Company Number: US-PFIZER INC-2008010173

PATIENT
  Sex: Female
  Weight: 15.7 kg

DRUGS (2)
  1. ZITHROMAX [Suspect]
     Indication: OTITIS MEDIA
     Dosage: 100MG/5ML
     Dates: start: 20080125, end: 20080125
  2. MOTRIN [Concomitant]

REACTIONS (1)
  - RASH PRURITIC [None]
